FAERS Safety Report 11119994 (Version 2)
Quarter: 2015Q3

REPORT INFORMATION
  Report Type: Spontaneous
  Country: US (occurrence: US)
  Receive Date: 20150518
  Receipt Date: 20150731
  Transmission Date: 20151125
  Serious: Yes (Other)
  Sender: FDA-Public Use
  Company Number: US-GE HEALTHCARE MEDICAL DIAGNOSTICS-OMPQ-PR-1505S-0766

PATIENT
  Age: 67 Year
  Sex: Male

DRUGS (7)
  1. COZAAR [Concomitant]
     Active Substance: LOSARTAN POTASSIUM
  2. OMNIPAQUE [Suspect]
     Active Substance: IOHEXOL
     Indication: HAEMATURIA
  3. PROSCAR [Concomitant]
     Active Substance: FINASTERIDE
  4. NORCO [Concomitant]
     Active Substance: ACETAMINOPHEN\HYDROCODONE BITARTRATE
  5. OMNIPAQUE [Suspect]
     Active Substance: IOHEXOL
     Indication: FLANK PAIN
     Route: 042
     Dates: start: 20150507, end: 20150507
  6. OMNIPAQUE [Suspect]
     Active Substance: IOHEXOL
     Indication: DIAGNOSTIC PROCEDURE
  7. LIPITOR [Concomitant]
     Active Substance: ATORVASTATIN CALCIUM

REACTIONS (1)
  - Contrast media allergy [Recovered/Resolved]

NARRATIVE: CASE EVENT DATE: 20150507
